FAERS Safety Report 4331726-6 (Version None)
Quarter: 2004Q2

REPORT INFORMATION
  Report Type: 
  Country: None (occurrence: None)
  Receive Date: 20040405
  Receipt Date: 20030425
  Transmission Date: 20050107
  Serious: No
  Sender: FDA-Public Use
  Company Number: US-GLAXOSMITHKLINE-A0406254A

PATIENT
  Age: 59 Year
  Sex: Female

DRUGS (4)
  1. FLOVENT [Suspect]
     Indication: ASTHMA
     Dosage: 440MCG UNKNOWN
     Route: 055
     Dates: start: 20020101
  2. FLONASE [Suspect]
     Indication: ASTHMA
     Route: 045
  3. ADVAIR DISKUS 100/50 [Suspect]
     Indication: ASTHMA
     Route: 055
  4. ALBUTEROL [Concomitant]
     Indication: ASTHMA

REACTIONS (5)
  - DRUG INEFFECTIVE [None]
  - DYSPNOEA [None]
  - HOARSENESS [None]
  - ORAL CANDIDIASIS [None]
  - THROAT IRRITATION [None]
